FAERS Safety Report 5624777-2 (Version None)
Quarter: 2008Q1

REPORT INFORMATION
  Report Type: 
  Country: None (occurrence: None)
  Receive Date: 20080213
  Receipt Date: 20080206
  Transmission Date: 20080703
  Serious: Yes (Hospitalization)
  Sender: FDA-Public Use
  Company Number: NL-TEVA-166541ISR

PATIENT
  Weight: 4.3 kg

DRUGS (2)
  1. HYDROCORTISONE [Suspect]
     Indication: ENDOCRINE DISORDER
     Dates: start: 20070626
  2. MORPHINE HCL ELIXIR [Suspect]
     Indication: SURGERY
     Dates: start: 20070701

REACTIONS (1)
  - HYDROCEPHALUS [None]
